FAERS Safety Report 18265290 (Version 1)
Quarter: 2020Q3

REPORT INFORMATION
  Report Type: Spontaneous
  Country: US (occurrence: US)
  Receive Date: 20200915
  Receipt Date: 20200915
  Transmission Date: 20201103
  Serious: No
  Sender: FDA-Public Use
  Company Number: US-JIANGSU HENGRUI MEDICINE CO., LTD.-2090719

PATIENT
  Sex: Male

DRUGS (6)
  1. R?GDP [RITUXIMAB] [Suspect]
     Active Substance: RITUXIMAB
  2. R CHOP(CYCLOPHOSPHAMIDE, DOXORUBICIN HYDROCHLORIDE, PREDNISONE, RITUXI [Suspect]
     Active Substance: CYCLOPHOSPHAMIDE\DOXORUBICIN\PREDNISONE\RITUXIMAB\VINCRISTINE
  3. R?GDP [DEXAMETHASONE] [Suspect]
     Active Substance: DEXAMETHASONE
  4. CYCLOPHOSPHAMIDE FOR INJECTION USP, 500 MG, 1 G AND 2 G PER SINGLE?DOS [Suspect]
     Active Substance: CYCLOPHOSPHAMIDE
     Indication: DIFFUSE LARGE B-CELL LYMPHOMA STAGE IV
  5. R?GDP [CISPLATIN] [Suspect]
     Active Substance: CISPLATIN
  6. R?GDP [GEMCITABINE] [Suspect]
     Active Substance: GEMCITABINE

REACTIONS (1)
  - Neoplasm progression [None]
